FAERS Safety Report 12978757 (Version 3)
Quarter: 2016Q4

REPORT INFORMATION
  Report Type: Spontaneous
  Country: IT (occurrence: IT)
  Receive Date: 20161128
  Receipt Date: 20161230
  Transmission Date: 20170207
  Serious: Yes (Hospitalization)
  Sender: FDA-Public Use
  Company Number: IT-JNJFOC-20161124222

PATIENT
  Age: 11 Year
  Sex: Male
  Weight: 30 kg

DRUGS (1)
  1. TOPAMAX [Suspect]
     Active Substance: TOPIRAMATE
     Indication: MIGRAINE
     Route: 048
     Dates: start: 20161122, end: 20161122

REACTIONS (3)
  - Intentional overdose [Unknown]
  - Intentional self-injury [Unknown]
  - Vomiting [Unknown]

NARRATIVE: CASE EVENT DATE: 20161122
